FAERS Safety Report 10902261 (Version 1)
Quarter: 2015Q1

REPORT INFORMATION
  Report Type: Report from Study
  Country: BR (occurrence: BR)
  Receive Date: 20150310
  Receipt Date: 20150310
  Transmission Date: 20150721
  Serious: Yes (Death, Hospitalization)
  Sender: FDA-Public Use
  Company Number: PHHY2015BR028684

PATIENT
  Sex: Female

DRUGS (1)
  1. TRILEPTAL [Suspect]
     Active Substance: OXCARBAZEPINE
     Indication: SLEEP DISORDER
     Dosage: 1 DF, QHS
     Route: 065
     Dates: end: 20140206

REACTIONS (3)
  - Neoplasm malignant [Fatal]
  - Coma [Fatal]
  - Product use issue [Unknown]

NARRATIVE: CASE EVENT DATE: 20140206
